FAERS Safety Report 7778458-X (Version None)
Quarter: 2011Q3

REPORT INFORMATION
  Report Type: 
  Country: None (occurrence: None)
  Receive Date: 20110926
  Receipt Date: 20110920
  Transmission Date: 20111222
  Serious: Yes (Death)
  Sender: FDA-Public Use
  Company Number: JP-GLAXOSMITHKLINE-B0743074A

PATIENT
  Sex: Female

DRUGS (15)
  1. CABAGIN-U [Concomitant]
     Indication: GASTROINTESTINAL DISORDER
     Dosage: 75MG PER DAY
     Route: 048
  2. CLONAZEPAM [Concomitant]
     Indication: BIPOLAR DISORDER
     Dosage: 3MG PER DAY
     Route: 048
     Dates: start: 20100106
  3. GOODMIN [Concomitant]
     Indication: BIPOLAR DISORDER
     Dosage: .25MG PER DAY
     Route: 048
     Dates: start: 20101215
  4. MUCOSTA [Concomitant]
     Indication: GASTROINTESTINAL DISORDER
     Dosage: 300MG PER DAY
     Route: 048
     Dates: start: 20100106
  5. LUDIOMIL [Concomitant]
     Indication: BIPOLAR DISORDER
     Dosage: 100MG PER DAY
     Route: 048
     Dates: start: 20100106
  6. ROZEREM [Concomitant]
     Indication: BIPOLAR DISORDER
     Dosage: 8MG PER DAY
     Route: 048
     Dates: start: 20101215
  7. PRIMPERAN TAB [Concomitant]
     Indication: GASTROINTESTINAL DISORDER
     Dosage: 15MG PER DAY
     Route: 048
     Dates: start: 20101215
  8. ALLOID G [Concomitant]
     Indication: GASTROINTESTINAL DISORDER
     Dosage: 9G PER DAY
     Route: 048
     Dates: start: 20110804
  9. SEDIEL [Concomitant]
     Indication: BIPOLAR DISORDER
     Dosage: 60MG PER DAY
     Route: 048
     Dates: start: 20100106
  10. DORAL [Concomitant]
     Indication: BIPOLAR DISORDER
     Dosage: 15MG PER DAY
     Route: 048
     Dates: start: 20110120
  11. LAMICTAL [Suspect]
     Indication: BIPOLAR DISORDER
     Dosage: 25MG ALTERNATE DAYS
     Route: 048
     Dates: start: 20110803, end: 20110815
  12. SEROQUEL [Concomitant]
     Indication: BIPOLAR DISORDER
     Dosage: 75MG PER DAY
     Route: 048
     Dates: start: 20101215
  13. VALERIAN ROOT [Concomitant]
     Indication: BIPOLAR DISORDER
     Dosage: 1000MG PER DAY
     Route: 048
     Dates: start: 20100106
  14. SILECE [Concomitant]
     Indication: BIPOLAR DISORDER
     Dosage: 2MG PER DAY
     Route: 048
     Dates: start: 20100106
  15. LULLAN [Concomitant]
     Indication: BIPOLAR DISORDER
     Dosage: 8MG PER DAY
     Route: 048
     Dates: start: 20110120

REACTIONS (9)
  - UPPER RESPIRATORY TRACT INFLAMMATION [None]
  - CONVULSION [None]
  - ARTHRALGIA [None]
  - COUGH [None]
  - HYPOXIC-ISCHAEMIC ENCEPHALOPATHY [None]
  - PYREXIA [None]
  - ALTERED STATE OF CONSCIOUSNESS [None]
  - DRUG ERUPTION [None]
  - PRURITUS [None]
